FAERS Safety Report 6112807-3 (Version None)
Quarter: 2009Q1

REPORT INFORMATION
  Report Type: 
  Country: None (occurrence: None)
  Receive Date: 20090310
  Receipt Date: 20090305
  Transmission Date: 20090719
  Serious: Yes (Hospitalization, Other)
  Sender: FDA-Public Use
  Company Number: GXKR2009DE01609

PATIENT
  Age: 22 Year
  Sex: Female

DRUGS (7)
  1. GABAPENTIN [Suspect]
     Indication: COMPLEX REGIONAL PAIN SYNDROME
     Dates: start: 20080201, end: 20090123
  2. TILIDIN HEXAL COMP (NGX) (NALOXONE, TILIDINE) [Suspect]
     Indication: COMPLEX REGIONAL PAIN SYNDROME
     Dosage: 50 MG, BID, , 50 MG, 2-0-2 DAILY, ORAL
     Route: 048
     Dates: start: 20081201, end: 20081201
  3. TILIDIN HEXAL COMP (NGX) (NALOXONE, TILIDINE) [Suspect]
     Indication: COMPLEX REGIONAL PAIN SYNDROME
     Dosage: 50 MG, BID, , 50 MG, 2-0-2 DAILY, ORAL
     Route: 048
     Dates: start: 20081210, end: 20081201
  4. IBUHEXAL (NGX) (IBUPROFEN) FILM-COATED TABLET, 800MG [Suspect]
     Indication: COMPLEX REGIONAL PAIN SYNDROME
     Dates: start: 20080801, end: 20090101
  5. ACETAMINOPHEN [Suspect]
     Indication: COMPLEX REGIONAL PAIN SYNDROME
     Dates: start: 20081101, end: 20090101
  6. LYRICA [Suspect]
     Indication: COMPLEX REGIONAL PAIN SYNDROME
     Dates: start: 20080401, end: 20090101
  7. DICLOFENAC SODIUM [Suspect]
     Indication: COMPLEX REGIONAL PAIN SYNDROME
     Dates: start: 20081201

REACTIONS (19)
  - AMNESIA [None]
  - APATHY [None]
  - CONVULSION [None]
  - DISEASE RECURRENCE [None]
  - DRUG INTERACTION [None]
  - DRUG TOXICITY [None]
  - HAEMOPTYSIS [None]
  - LOSS OF CONSCIOUSNESS [None]
  - MUSCLE SPASTICITY [None]
  - PAINFUL RESPIRATION [None]
  - PARAESTHESIA [None]
  - PARALYSIS [None]
  - RESPIRATORY DISORDER [None]
  - SPEECH DISORDER [None]
  - TONGUE BITING [None]
  - TRANCE [None]
  - TREMOR [None]
  - UNRESPONSIVE TO STIMULI [None]
  - VISUAL IMPAIRMENT [None]
